FAERS Safety Report 6014278-4 (Version None)
Quarter: 2008Q4

REPORT INFORMATION
  Report Type: 
  Country: None (occurrence: None)
  Receive Date: 20081219
  Receipt Date: 20080422
  Transmission Date: 20090506
  Serious: No
  Sender: FDA-Public Use
  Company Number: A0716690A

PATIENT
  Age: 81 Year
  Sex: Male

DRUGS (7)
  1. AVODART [Suspect]
     Dosage: 5MG PER DAY
     Route: 048
     Dates: start: 20080318
  2. XANAX [Concomitant]
  3. NORVASK [Concomitant]
  4. GLUCOTROL [Concomitant]
  5. TYLENOL (CAPLET) [Concomitant]
  6. NAPROXEN [Concomitant]
  7. VICODIN [Concomitant]

REACTIONS (2)
  - GLOSSODYNIA [None]
  - THROAT IRRITATION [None]
